FAERS Safety Report 24048987 (Version 1)
Quarter: 2024Q3

REPORT INFORMATION
  Report Type: Spontaneous
  Country: US (occurrence: US)
  Receive Date: 20240704
  Receipt Date: 20240704
  Transmission Date: 20241016
  Serious: No
  Sender: SUNOVION
  Company Number: US-SMPA-2024SPA000103AA

PATIENT

DRUGS (1)
  1. LATUDA [Suspect]
     Active Substance: LURASIDONE HYDROCHLORIDE
     Indication: Product used for unknown indication
     Dosage: UNK
     Route: 048
     Dates: start: 202312

REACTIONS (4)
  - Anger [Unknown]
  - Aggression [Unknown]
  - Screaming [Unknown]
  - Affect lability [Unknown]

NARRATIVE: CASE EVENT DATE: 20240101
